FAERS Safety Report 20221516 (Version 1)
Quarter: 2021Q4

REPORT INFORMATION
  Report Type: Spontaneous
  Country: US (occurrence: US)
  Receive Date: 20211223
  Receipt Date: 20211223
  Transmission Date: 20220303
  Serious: No
  Sender: FDA-Public Use
  Company Number: US-GLAXOSMITHKLINE-USCH2021091039

PATIENT
  Age: 58 Year
  Sex: Male

DRUGS (1)
  1. VOLTAREN ARTHRITIS PAIN [Suspect]
     Active Substance: DICLOFENAC SODIUM
     Indication: Sciatica
     Dosage: UNK
     Dates: start: 20211217, end: 20211218

REACTIONS (4)
  - Palpitations [Unknown]
  - Hyperhidrosis [Unknown]
  - Heart rate increased [Unknown]
  - Product use in unapproved indication [Recovered/Resolved]
